FAERS Safety Report 7551671-2 (Version None)
Quarter: 2011Q2

REPORT INFORMATION
  Report Type: 
  Country: None (occurrence: None)
  Receive Date: 20110609
  Receipt Date: 20110524
  Transmission Date: 20111010
  Serious: Yes (Hospitalization, Other)
  Sender: FDA-Public Use
  Company Number: 2011MA006375

PATIENT
  Age: 32 Year
  Sex: Male

DRUGS (1)
  1. SULFATRIM [Suspect]
     Indication: PROSTATITIS
     Dosage: 480 MG, BID,

REACTIONS (2)
  - URETHRITIS [None]
  - PANCREATITIS RELAPSING [None]
